FAERS Safety Report 24146717 (Version 1)
Quarter: 2024Q3

REPORT INFORMATION
  Report Type: Spontaneous
  Country: US (occurrence: US)
  Receive Date: 20240729
  Receipt Date: 20240729
  Transmission Date: 20241017
  Serious: Yes (Other)
  Sender: JOHNSON AND JOHNSON
  Company Number: US-JNJFOC-20240764301

PATIENT
  Age: 57 Year
  Sex: Female

DRUGS (3)
  1. SPRAVATO [Suspect]
     Active Substance: ESKETAMINE
     Indication: Depression
     Dosage: ^56 MG, 5 TOTAL DOSES^
     Dates: start: 20240115, end: 20240216
  2. SPRAVATO [Suspect]
     Active Substance: ESKETAMINE
     Dosage: ^84MG, 23 TOTAL DOSES^
     Dates: start: 20240219, end: 20240718
  3. SPRAVATO [Suspect]
     Active Substance: ESKETAMINE
     Dosage: ^56 MG, 1 TOTAL DOSE^,  PATIENT ALSO HAD TREATMENT ON 24-JUL-2024
     Dates: start: 202407, end: 202407

REACTIONS (6)
  - Loss of consciousness [Unknown]
  - Gait inability [Recovered/Resolved]
  - Speech disorder [Recovered/Resolved]
  - Headache [Recovered/Resolved]
  - Hyperhidrosis [Unknown]
  - Product dose omission issue [Unknown]

NARRATIVE: CASE EVENT DATE: 20240617
